FAERS Safety Report 9417821 (Version 1)
Quarter: 2013Q3

REPORT INFORMATION
  Report Type: Spontaneous
  Country: US (occurrence: US)
  Receive Date: 20130724
  Receipt Date: 20130724
  Transmission Date: 20140515
  Serious: No
  Sender: FDA-Public Use
  Company Number: US-FOUGERA-2012FO001309

PATIENT
  Age: 59 Year
  Sex: Male

DRUGS (1)
  1. CICLOPIROX [Suspect]
     Indication: FUNGAL INFECTION
     Route: 061
     Dates: start: 20120605

REACTIONS (2)
  - Exfoliative rash [Not Recovered/Not Resolved]
  - Dry skin [Not Recovered/Not Resolved]
